FAERS Safety Report 24918674 (Version 1)
Quarter: 2025Q1

REPORT INFORMATION
  Report Type: Spontaneous
  Country: NL (occurrence: NL)
  Receive Date: 20250203
  Receipt Date: 20250203
  Transmission Date: 20250409
  Serious: Yes (Hospitalization, Other)
  Sender: ABBVIE
  Company Number: NL-JNJFOC-20250129640

PATIENT

DRUGS (2)
  1. IMBRUVICA [Suspect]
     Active Substance: IBRUTINIB
     Indication: Central nervous system lymphoma
     Route: 048
  2. LENALIDOMIDE [Concomitant]
     Active Substance: LENALIDOMIDE
     Indication: Product used for unknown indication

REACTIONS (5)
  - COVID-19 [Unknown]
  - Off label use [Unknown]
  - Blood immunoglobulin G decreased [Unknown]
  - Neutrophil count decreased [Unknown]
  - Central nervous system lymphoma [Unknown]
